FAERS Safety Report 5243105-8 (Version None)
Quarter: 2007Q1

REPORT INFORMATION
  Report Type: 
  Country: None (occurrence: None)
  Receive Date: 20070213
  Receipt Date: 20070201
  Transmission Date: 20070707
  Serious: Yes (Hospitalization)
  Sender: FDA-Public Use
  Company Number: S07-NOR-00603-01

PATIENT
  Age: 83 Year
  Sex: Male

DRUGS (5)
  1. CIPRALEX (ESCITALOPRAM) [Suspect]
     Indication: DEPRESSION
     Dosage: 10 MG QD PO
     Route: 048
     Dates: start: 20060919, end: 20061020
  2. ZELDOX /SWE/ (ZIPRASIDONE HYDROCHLORIDE) [Suspect]
     Indication: PARANOIA
     Dosage: 20 MG BID PO
     Route: 048
     Dates: start: 20060928, end: 20061020
  3. SIMVASTATIN [Concomitant]
  4. INSULATARD NPH HUMAN [Concomitant]
  5. ALBYL-ENTEROSOLUBILE [Concomitant]

REACTIONS (7)
  - BLOOD PRESSURE INCREASED [None]
  - CEREBRAL INFARCTION [None]
  - CEREBROVASCULAR ACCIDENT [None]
  - CONFUSIONAL STATE [None]
  - DEPRESSION [None]
  - PARANOIA [None]
  - RESTLESSNESS [None]
